FAERS Safety Report 13449729 (Version 1)
Quarter: 2017Q2

REPORT INFORMATION
  Report Type: Spontaneous
  Country: US (occurrence: US)
  Receive Date: 20170417
  Receipt Date: 20170417
  Transmission Date: 20170830
  Serious: No
  Sender: FDA-Public Use
  Company Number: US-BANPHARM-20164689

PATIENT
  Age: 61 Year
  Weight: 122.47 kg

DRUGS (16)
  1. FUROSEMIDE. [Concomitant]
     Active Substance: FUROSEMIDE
  2. SCOBENSIDRINE [Concomitant]
  3. METOPROLOL. [Concomitant]
     Active Substance: METOPROLOL
  4. ALEVE [Suspect]
     Active Substance: NAPROXEN SODIUM
     Indication: ARTHRITIS
     Dosage: 1 DF, PRN,
     Route: 048
  5. IMITREX [Concomitant]
     Active Substance: SUMATRIPTAN SUCCINATE
  6. METFORMIN [Concomitant]
     Active Substance: METFORMIN HYDROCHLORIDE
  7. VITAMIN B12 SPRING VALLEY BRAND [Concomitant]
  8. TRAMADOL. [Concomitant]
     Active Substance: TRAMADOL
  9. ANABOLEX [Concomitant]
  10. LISINOPRIL. [Concomitant]
     Active Substance: LISINOPRIL
  11. CLARITIN [Concomitant]
     Active Substance: LORATADINE
     Dosage: 1 DF{ QD,
  12. LEVOTHYROXINE. [Concomitant]
     Active Substance: LEVOTHYROXINE
  13. GABAPENTIN. [Concomitant]
     Active Substance: GABAPENTIN
  14. INHALER [Concomitant]
     Active Substance: UNSPECIFIED INGREDIENT
  15. ATORVASTATIN [Concomitant]
     Active Substance: ATORVASTATIN
  16. FIBUTERIDE [Concomitant]

REACTIONS (1)
  - No adverse event [Unknown]
